FAERS Safety Report 6317931-8 (Version None)
Quarter: 2009Q3

REPORT INFORMATION
  Report Type: 
  Country: None (occurrence: None)
  Receive Date: 20090821
  Receipt Date: 20090811
  Transmission Date: 20100115
  Serious: Yes (Death, Life-Threatening, Hospitalization, Disabling)
  Sender: FDA-Public Use
  Company Number: AR-JNJFOC-20080900788

PATIENT
  Sex: Female
  Weight: 72 kg

DRUGS (18)
  1. GOLIMUMAB [Suspect]
     Route: 042
  2. GOLIMUMAB [Suspect]
     Route: 042
  3. GOLIMUMAB [Suspect]
     Route: 042
  4. GOLIMUMAB [Suspect]
     Route: 042
  5. GOLIMUMAB [Suspect]
     Route: 042
  6. GOLIMUMAB [Suspect]
     Route: 042
  7. GOLIMUMAB [Suspect]
     Indication: RHEUMATOID ARTHRITIS
     Route: 042
  8. METHOTREXATE [Suspect]
     Route: 048
  9. METHOTREXATE [Suspect]
     Indication: RHEUMATOID ARTHRITIS
     Route: 048
  10. PLACEBO [Suspect]
     Indication: RHEUMATOID ARTHRITIS
     Route: 048
  11. ACIFOL [Concomitant]
     Route: 048
  12. DELTISONA B [Concomitant]
     Indication: RHEUMATOID ARTHRITIS
     Route: 048
  13. DICLOFENAC [Concomitant]
     Route: 048
  14. DORLAMIDA [Concomitant]
     Route: 047
  15. GADOPRIL [Concomitant]
     Route: 048
  16. INDUZEPAM [Concomitant]
     Route: 048
  17. PAROXETINE HCL [Concomitant]
     Route: 048
  18. MEPLAR [Concomitant]
     Route: 048

REACTIONS (3)
  - LUNG NEOPLASM MALIGNANT [None]
  - METASTASES TO CENTRAL NERVOUS SYSTEM [None]
  - RESPIRATORY FAILURE [None]
